FAERS Safety Report 7756928-8 (Version None)
Quarter: 2011Q3

REPORT INFORMATION
  Report Type: 
  Country: None (occurrence: None)
  Receive Date: 20110916
  Receipt Date: 20110829
  Transmission Date: 20111222
  Serious: Yes (Other)
  Sender: FDA-Public Use
  Company Number: JP-GLAXOSMITHKLINE-B0735824A

PATIENT
  Sex: Female

DRUGS (5)
  1. LAMICTAL [Suspect]
     Indication: BIPOLAR DISORDER
     Dosage: 25MG TWICE PER DAY
     Route: 048
     Dates: start: 20110702, end: 20110712
  2. VALPROIC ACID [Suspect]
     Dosage: 400MG PER DAY
     Route: 048
     Dates: start: 20110617, end: 20110713
  3. GOODMIN [Concomitant]
     Dosage: .25MG PER DAY
     Route: 048
     Dates: start: 20110621, end: 20110713
  4. CYSVON [Concomitant]
     Dosage: 5MG PER DAY
     Route: 048
     Dates: start: 20110621, end: 20110713
  5. TRAZODONE HYDROCHLORIDE [Concomitant]
     Dosage: 25MG PER DAY
     Route: 048
     Dates: start: 20110621, end: 20110713

REACTIONS (6)
  - HOT FLUSH [None]
  - RASH [None]
  - RESPIRATORY DEPRESSION [None]
  - DYSPNOEA [None]
  - PRURITUS [None]
  - SENSATION OF FOREIGN BODY [None]
